FAERS Safety Report 9913607 (Version 1)
Quarter: 2014Q1

REPORT INFORMATION
  Report Type: Spontaneous
  Country: US (occurrence: None)
  Receive Date: 20140218
  Receipt Date: 20140218
  Transmission Date: 20141002
  Serious: No
  Sender: FDA-Public Use
  Company Number: 2014-00027

PATIENT
  Age: 62 Year
  Sex: Female
  Weight: 83.92 kg

DRUGS (5)
  1. ZICAM EXTREME CONGESTION RELIEF [Suspect]
     Indication: NASAL CONGESTION
     Dosage: 1 SPRAY EACH NOSTRIL TWICE DAILY
     Dates: start: 20140205, end: 20140206
  2. METFORMIN [Concomitant]
  3. LOVASTATIN [Concomitant]
  4. LISINOPRIL [Concomitant]
  5. CITRACAL [Concomitant]

REACTIONS (2)
  - Anosmia [None]
  - Ageusia [None]
